FAERS Safety Report 26157668 (Version 1)
Quarter: 2025Q4

REPORT INFORMATION
  Report Type: Spontaneous
  Country: US (occurrence: None)
  Receive Date: 20251212
  Receipt Date: 20251212
  Transmission Date: 20260118
  Serious: Yes (Death)
  Sender: FDA-CTU
  Company Number: None

PATIENT
  Age: 74 Year
  Sex: Female
  Weight: 75 kg

DRUGS (1)
  1. DOTAREM [Suspect]
     Active Substance: GADOTERATE MEGLUMINE
     Indication: Scan with contrast
     Dosage: OTHER FREQUENCY : ONCE;
     Route: 040

REACTIONS (3)
  - Contrast media reaction [None]
  - Unresponsive to stimuli [None]
  - Anaphylactic reaction [None]

NARRATIVE: CASE EVENT DATE: 20251211
